FAERS Safety Report 7067390-5 (Version None)
Quarter: 2010Q4

REPORT INFORMATION
  Report Type: 
  Country: None (occurrence: None)
  Receive Date: 20101028
  Receipt Date: 20101025
  Transmission Date: 20110411
  Serious: Yes (Other)
  Sender: FDA-Public Use
  Company Number: US-WYE-H18311410

PATIENT
  Sex: Female
  Weight: 79.1 kg

DRUGS (9)
  1. RAPAMUNE [Suspect]
     Indication: PROPHYLAXIS AGAINST TRANSPLANT REJECTION
     Route: 048
     Dates: start: 20091106
  2. ACETYLSALICYLIC ACID [Concomitant]
     Indication: CARDIOVASCULAR EVENT PROPHYLAXIS
  3. DIVALPROEX SODIUM [Concomitant]
     Indication: BIPOLAR DISORDER
     Route: 048
     Dates: start: 20080801
  4. ZYPREXA [Concomitant]
     Indication: BIPOLAR DISORDER
     Route: 048
     Dates: start: 20100501
  5. CELL CEPT [Concomitant]
     Route: 048
     Dates: start: 20091204
  6. BACTRIM [Concomitant]
     Indication: ANTIFUNGAL PROPHYLAXIS
     Route: 048
     Dates: start: 20090611
  7. ZOCOR [Concomitant]
     Indication: HYPERLIPIDAEMIA
     Route: 048
     Dates: start: 20090720
  8. RAMIPRIL [Suspect]
     Indication: PROTEINURIA
     Route: 048
     Dates: start: 20091009
  9. NOVOLOG [Concomitant]
     Indication: TYPE 2 DIABETES MELLITUS
     Dosage: 12 UNIT EVERY 1 DAY
     Dates: start: 20100801

REACTIONS (1)
  - SQUAMOUS CELL CARCINOMA OF SKIN [None]
